FAERS Safety Report 8026313-2 (Version None)
Quarter: 2012Q1

REPORT INFORMATION
  Report Type: 
  Country: None (occurrence: None)
  Receive Date: 20120105
  Receipt Date: 20111222
  Transmission Date: 20120608
  Serious: No
  Sender: FDA-Public Use
  Company Number: US-ABBOTT-11P-163-0886343-00

PATIENT
  Age: 69 Year
  Sex: Female
  Weight: 53.572 kg

DRUGS (2)
  1. UNKNOWN MEDICATIONS [Concomitant]
     Indication: PRODUCT USED FOR UNKNOWN INDICATION
  2. SYNTHROID [Suspect]
     Indication: THYROID NEOPLASM
     Dates: start: 20111212, end: 20111222

REACTIONS (3)
  - ASTHENIA [None]
  - NAUSEA [None]
  - FATIGUE [None]
